FAERS Safety Report 9146214 (Version 1)
Quarter: 2013Q1

REPORT INFORMATION
  Report Type: Spontaneous
  Country: US (occurrence: US)
  Receive Date: 20130307
  Receipt Date: 20130307
  Transmission Date: 20140127
  Serious: Yes (Other)
  Sender: FDA-Public Use
  Company Number: US-009507513-1303USA002893

PATIENT
  Sex: 0

DRUGS (1)
  1. TEMODAR [Suspect]
     Indication: METASTATIC MALIGNANT MELANOMA
     Dosage: UNK
     Dates: end: 201303

REACTIONS (1)
  - Pancytopenia [Unknown]
